FAERS Safety Report 5049202-4 (Version None)
Quarter: 2006Q2

REPORT INFORMATION
  Report Type: 
  Country: None (occurrence: None)
  Receive Date: 20060613
  Receipt Date: 20060225
  Transmission Date: 20061013
  Serious: Yes (Hospitalization)
  Sender: FDA-Public Use
  Company Number: 2006-00371

PATIENT
  Age: 80 Year
  Sex: Male
  Weight: 74 kg

DRUGS (13)
  1. VELCADE [Suspect]
     Indication: MULTIPLE MYELOMA
     Dosage: 1.30 MG/M2, INTRAVENOUS
     Route: 042
     Dates: start: 20060123
  2. COMPAZINE [Suspect]
     Indication: PROPHYLAXIS
     Dosage: 10.00 MG
     Dates: start: 20060202
  3. MECLIZINE [Suspect]
     Dosage: 50.00 MG, QID
  4. FERROUS SULPHATE(FERROUS SULFATE) [Suspect]
  5. DILTIAZEM [Concomitant]
  6. HYDROCORTISONE [Concomitant]
  7. LEVOTHYROXINE SODIUM [Concomitant]
  8. NITROGLYCERIN [Concomitant]
  9. OMEPRAZOLE [Concomitant]
  10. ASPIRIN [Concomitant]
  11. ISOSORBIDE (ISOSORBIDE) [Concomitant]
  12. ZOMETA [Concomitant]
  13. POTASSIUM CHLORIDE [Concomitant]

REACTIONS (2)
  - SMALL INTESTINAL OBSTRUCTION [None]
  - THROMBOCYTOPENIA [None]
